FAERS Safety Report 4825657-2 (Version None)
Quarter: 2005Q4

REPORT INFORMATION
  Report Type: 
  Country: None (occurrence: None)
  Receive Date: 20051109
  Receipt Date: 20051101
  Transmission Date: 20060501
  Serious: Yes (Hospitalization, Other)
  Sender: FDA-Public Use
  Company Number: 2005-03-2002

PATIENT

DRUGS (2)
  1. CLARITIN [Suspect]
     Dosage: ORAL
     Route: 048
  2. ANTIFUNGAL [Concomitant]

REACTIONS (2)
  - SHOCK [None]
  - STAPHYLOCOCCAL INFECTION [None]
